FAERS Safety Report 6542433-3 (Version None)
Quarter: 2010Q1

REPORT INFORMATION
  Report Type: 
  Country: None (occurrence: None)
  Receive Date: 20100114
  Receipt Date: 20100114
  Transmission Date: 20100710
  Serious: Yes (Other)
  Sender: FDA-Public Use
  Company Number: None

PATIENT
  Sex: Female
  Weight: 64.9097 kg

DRUGS (2)
  1. AVALIDE [Suspect]
     Indication: HYPERTENSION
     Dosage: 150/12.5 ONE DAILY PO
     Route: 048
     Dates: start: 20091224, end: 20091225
  2. AVALIDE [Suspect]
     Indication: HYPERTENSION
     Dosage: 150/12.5 ONE DAILY PO
     Route: 048
     Dates: start: 20091223

REACTIONS (4)
  - HEART RATE INCREASED [None]
  - PALPITATIONS [None]
  - RASH [None]
  - TINNITUS [None]
